FAERS Safety Report 23096309 (Version 2)
Quarter: 2023Q4

REPORT INFORMATION
  Report Type: Report from Study
  Country: US (occurrence: US)
  Receive Date: 20231023
  Receipt Date: 20231212
  Transmission Date: 20240110
  Serious: No
  Sender: FDA-Public Use
  Company Number: US-002147023-NVSC2023US226920

PATIENT
  Sex: Female
  Weight: 115.65 kg

DRUGS (1)
  1. COSENTYX [Suspect]
     Active Substance: SECUKINUMAB
     Indication: Psoriasis
     Dosage: UNK
     Route: 065
     Dates: start: 202007

REACTIONS (4)
  - Psoriasis [Unknown]
  - Condition aggravated [Unknown]
  - Drug ineffective [Unknown]
  - Rebound effect [Unknown]
